FAERS Safety Report 8798746 (Version 1)
Quarter: 2012Q4

REPORT INFORMATION
  Report Type: Report from Study
  Country: CA (occurrence: CA)
  Receive Date: 20120920
  Receipt Date: 20120920
  Transmission Date: 20130627
  Serious: Yes (Hospitalization)
  Sender: FDA-Public Use
  Company Number: CA-ROCHE-1127349

PATIENT
  Sex: Male
  Weight: 92.62 kg

DRUGS (7)
  1. AVASTIN [Suspect]
     Indication: GLIOBLASTOMA
     Route: 042
     Dates: start: 20110901, end: 20111124
  2. DILANTIN [Concomitant]
     Route: 065
  3. DECADRON [Concomitant]
     Route: 065
  4. PREVACID [Concomitant]
  5. LORAZEPAM [Concomitant]
  6. ZANTAC [Concomitant]
     Route: 065
  7. REACTINE (CANADA) [Concomitant]

REACTIONS (1)
  - Disease progression [Not Recovered/Not Resolved]
